FAERS Safety Report 7964836-2 (Version None)
Quarter: 2011Q4

REPORT INFORMATION
  Report Type: 
  Country: None (occurrence: None)
  Receive Date: 20111208
  Receipt Date: 20111129
  Transmission Date: 20120403
  Serious: Yes (Other)
  Sender: FDA-Public Use
  Company Number: PHHY2011JP105316

PATIENT
  Age: 65 Year
  Sex: Male

DRUGS (2)
  1. NORVASC [Concomitant]
     Dosage: 5 MG, UNK
     Route: 048
  2. DIOVAN [Suspect]
     Dosage: UNK UKN, UNK
     Route: 048
     Dates: start: 20111025

REACTIONS (4)
  - DYSGEUSIA [None]
  - TONGUE DISCOLOURATION [None]
  - PARAESTHESIA ORAL [None]
  - DYSSTASIA [None]
